FAERS Safety Report 18543352 (Version 2)
Quarter: 2021Q1

REPORT INFORMATION
  Report Type: Spontaneous
  Country: JP (occurrence: JP)
  Receive Date: 20201125
  Receipt Date: 20210223
  Transmission Date: 20210419
  Serious: Yes (Other)
  Sender: FDA-Public Use
  Company Number: JP-PFIZER INC-2020458325

PATIENT
  Age: 16 Year
  Sex: Female

DRUGS (1)
  1. METHOTREXATE. [Suspect]
     Active Substance: METHOTREXATE
     Indication: OSTEOSARCOMA
     Dosage: 1190 MG, WEEKLY
     Route: 042
     Dates: start: 20201116, end: 20201116

REACTIONS (14)
  - Off label use [Unknown]
  - Basophil count decreased [Unknown]
  - Monocyte count decreased [Unknown]
  - Erythema [Recovered/Resolved]
  - Lacrimation increased [Unknown]
  - Blood potassium decreased [Unknown]
  - Dyspnoea [Recovered/Resolved]
  - White blood cell count increased [Unknown]
  - Eosinophil count decreased [Unknown]
  - Neutrophil count increased [Unknown]
  - Hypersensitivity [Recovered/Resolved]
  - Rhinorrhoea [Recovered/Resolved]
  - Abnormal sensation in eye [Recovered/Resolved]
  - Periorbital swelling [Unknown]

NARRATIVE: CASE EVENT DATE: 20201116
